FAERS Safety Report 10657760 (Version 2)
Quarter: 2015Q2

REPORT INFORMATION
  Report Type: Spontaneous
  Country: US (occurrence: None)
  Receive Date: 20141215
  Receipt Date: 20150518
  Transmission Date: 20150821
  Serious: Yes (Hospitalization)
  Sender: FDA-Public Use
  Company Number: US-H14001-14-01745

PATIENT
  Age: 9 Year
  Sex: Male

DRUGS (4)
  1. OMEPRAZOLE. [Concomitant]
     Active Substance: OMEPRAZOLE
  2. VALPROIC ACID (VALPROIC ACID) (UNKNOWN) (VALPROIC ACID) [Suspect]
     Active Substance: VALPROIC ACID
     Indication: PRODUCT USED FOR UNKNOWN INDICATION
  3. PHENOBARBITAL (PHENOBARBITAL) [Suspect]
     Active Substance: PHENOBARBITAL
     Indication: PRODUCT USED FOR UNKNOWN INDICATION
  4. AMPICILLIN [Concomitant]
     Active Substance: AMPICILLIN

REACTIONS (3)
  - Drug reaction with eosinophilia and systemic symptoms [None]
  - Infection [None]
  - Hypereosinophilic syndrome [None]
